FAERS Safety Report 4698624-X (Version None)
Quarter: 2005Q2

REPORT INFORMATION
  Report Type: 
  Country: None (occurrence: None)
  Receive Date: 20050623
  Receipt Date: 20041105
  Transmission Date: 20051028
  Serious: Yes (Life-Threatening)
  Sender: FDA-Public Use
  Company Number: NUBN20040022

PATIENT
  Age: 72 Year
  Sex: Female
  Weight: 139 kg

DRUGS (10)
  1. NUBAIN [Suspect]
     Dosage: 20 MG IV
     Route: 042
     Dates: start: 20040101, end: 20040923
  2. TOPALGIC SR  UNK  UNKNOWN [Suspect]
     Dosage: 300 MG /DAY PO
     Route: 048
     Dates: start: 20040921, end: 20040923
  3. ENALAPRIL MALEATE [Concomitant]
  4. ATENOLOL [Concomitant]
  5. INDAPAMIDE [Concomitant]
  6. PRAVASTATIN [Concomitant]
  7. BI-PROFENID (KETOPROFENE) [Concomitant]
  8. KARDEGIC [Concomitant]
  9. FRAGMIN [Concomitant]
  10. FOSAMAX [Concomitant]

REACTIONS (3)
  - DEPRESSION [None]
  - DRUG INTERACTION [None]
  - OVERDOSE [None]
